FAERS Safety Report 7501071-6 (Version None)
Quarter: 2011Q2

REPORT INFORMATION
  Report Type: 
  Country: None (occurrence: None)
  Receive Date: 20110524
  Receipt Date: 20100610
  Transmission Date: 20111010
  Serious: No
  Sender: FDA-Public Use
  Company Number: US-NOVEN-ALL1-2010-03318

PATIENT

DRUGS (2)
  1. DAYTRANA [Suspect]
     Dosage: UNK MG, 1X/DAY:QD
     Route: 062
  2. CHLOROPHYLL [Concomitant]
     Dosage: UNK, UNKNOWN
     Route: 048

REACTIONS (1)
  - APPLICATION SITE RASH [None]
